FAERS Safety Report 7190717-0 (Version None)
Quarter: 2010Q4

REPORT INFORMATION
  Report Type: 
  Country: None (occurrence: None)
  Receive Date: 20101223
  Receipt Date: 20101222
  Transmission Date: 20110411
  Serious: No
  Sender: FDA-Public Use
  Company Number: US-JNJFOC-20100207766

PATIENT
  Age: 44 Year
  Sex: Female
  Weight: 75.75 kg

DRUGS (3)
  1. ERTACZO [Suspect]
     Indication: TINEA PEDIS
     Route: 061
  2. ASTHMA INHALER [Concomitant]
     Indication: ASTHMA
     Route: 055
  3. KLONOPIN [Concomitant]
     Route: 065

REACTIONS (2)
  - APPLICATION SITE INFECTION [None]
  - APPLICATION SITE PAIN [None]
